FAERS Safety Report 8465530-4 (Version None)
Quarter: 2012Q2

REPORT INFORMATION
  Report Type: 
  Country: None (occurrence: None)
  Receive Date: 20120626
  Receipt Date: 20120621
  Transmission Date: 20120825
  Serious: Yes (Death, Hospitalization)
  Sender: FDA-Public Use
  Company Number: CH-NOVOPROD-353326

PATIENT
  Age: 70 Year
  Sex: Male
  Weight: 69 kg

DRUGS (7)
  1. NOVOSEVEN [Suspect]
     Indication: FACTOR VIII DEFICIENCY
     Dosage: 31 MG, QD
     Route: 042
     Dates: start: 20120523
  2. CYKLOKAPRON [Suspect]
     Dosage: 2.5 G, QD
     Route: 048
     Dates: start: 20120527
  3. CYKLOKAPRON [Suspect]
     Dosage: 1.5 G, QD
     Route: 048
     Dates: start: 20120528, end: 20120601
  4. NOVOSEVEN [Suspect]
     Dosage: 40 MG, QD
     Route: 042
     Dates: start: 20120524
  5. CYKLOKAPRON [Suspect]
     Indication: HAEMORRHAGE
     Dosage: 1 G, TID
     Route: 048
     Dates: start: 20120522, end: 20120526
  6. NOVOSEVEN [Suspect]
     Indication: GASTROINTESTINAL HAEMORRHAGE
     Dosage: 19 MG, QD
     Route: 042
     Dates: start: 20120522
  7. NOVOSEVEN [Suspect]
     Dosage: 21 MG, QD
     Route: 042
     Dates: start: 20120525

REACTIONS (1)
  - CEREBRAL ISCHAEMIA [None]
